FAERS Safety Report 17940680 (Version 3)
Quarter: 2020Q3

REPORT INFORMATION
  Report Type: Spontaneous
  Country: PL (occurrence: PL)
  Receive Date: 20200625
  Receipt Date: 20200702
  Transmission Date: 20201103
  Serious: Yes (Hospitalization)
  Sender: FDA-Public Use
  Company Number: PL-SA-2020SA158841

PATIENT

DRUGS (10)
  1. PRALUENT [Suspect]
     Active Substance: ALIROCUMAB
     Indication: HYPERCHOLESTEROLAEMIA
     Dosage: UNK
  2. BENCYCLANE [Concomitant]
     Active Substance: BENCYCLANE
     Indication: PERIPHERAL ARTERIAL OCCLUSIVE DISEASE
     Dosage: UNK
  3. ENALAPRIL [Concomitant]
     Active Substance: ENALAPRIL
     Indication: HYPERTENSION
     Dosage: UNK
  4. ROSUVASTATIN. [Concomitant]
     Active Substance: ROSUVASTATIN
     Indication: HYPERCHOLESTEROLAEMIA
     Dosage: UNK
  5. ESOMEPRAZOL [ESOMEPRAZOLE] [Concomitant]
     Active Substance: ESOMEPRAZOLE
     Indication: PROPHYLAXIS AGAINST GASTROINTESTINAL ULCER
     Dosage: UNK
  6. LERCANIDIPIN ACTAVIS [Concomitant]
     Active Substance: LERCANIDIPINE
     Indication: HYPERTENSION
     Dosage: UNK
  7. TORSEMIDE. [Concomitant]
     Active Substance: TORSEMIDE
     Indication: HYPERTENSION
     Dosage: UNK
  8. ACETYLSALICYLIC ACID ALUMINIUM [Concomitant]
     Active Substance: ASPIRIN ALUMINUM
     Dosage: UNK
  9. ACETYLSALICYLIC ACID ALUMINIUM [Concomitant]
     Active Substance: ASPIRIN ALUMINUM
     Indication: CARDIOVASCULAR EVENT PROPHYLAXIS
     Dosage: UNK
  10. DOXAZOSIN [Concomitant]
     Active Substance: DOXAZOSIN MESYLATE
     Indication: HYPERTENSION
     Dosage: UNK

REACTIONS (1)
  - Hydrocele [Recovered/Resolved]

NARRATIVE: CASE EVENT DATE: 20191219
